FAERS Safety Report 5987867-0 (Version None)
Quarter: 2008Q4

REPORT INFORMATION
  Report Type: 
  Country: None (occurrence: None)
  Receive Date: 20081209
  Receipt Date: 20080312
  Transmission Date: 20090506
  Serious: No
  Sender: FDA-Public Use
  Company Number: US-TYCO HEALTHCARE/MALLINCKRODT-T200800543

PATIENT

DRUGS (1)
  1. ULTRA-TECHNEKOW [Suspect]
     Indication: VITELLO-INTESTINAL DUCT REMNANT
     Dosage: UNK, SINGLE
     Route: 042
     Dates: start: 20080304, end: 20080304

REACTIONS (1)
  - DRUG INEFFECTIVE [None]
